FAERS Safety Report 20732019 (Version 2)
Quarter: 2022Q2

REPORT INFORMATION
  Report Type: Spontaneous
  Country: US (occurrence: US)
  Receive Date: 20220420
  Receipt Date: 20220421
  Transmission Date: 20220720
  Serious: No
  Sender: FDA-Public Use
  Company Number: US-BoehringerIngelheim-2022-BI-166304

PATIENT
  Age: 67 Year
  Sex: Female

DRUGS (2)
  1. OFEV [Suspect]
     Active Substance: NINTEDANIB
     Indication: Respiratory failure
     Dosage: AFTER MEALS
     Route: 048
     Dates: start: 202203
  2. OFEV [Suspect]
     Active Substance: NINTEDANIB
     Indication: Pulmonary arterial hypertension

REACTIONS (3)
  - Haemoptysis [Recovered/Resolved]
  - Off label use [Unknown]
  - Productive cough [Unknown]

NARRATIVE: CASE EVENT DATE: 20220417
